FAERS Safety Report 5804246-7 (Version None)
Quarter: 2008Q3

REPORT INFORMATION
  Report Type: 
  Country: None (occurrence: None)
  Receive Date: 20080709
  Receipt Date: 20080704
  Transmission Date: 20090109
  Serious: Yes (Other)
  Sender: FDA-Public Use
  Company Number: CA-ASTRAZENECA-2008UW10760

PATIENT
  Age: 68 Year
  Sex: Female
  Weight: 68.6 kg

DRUGS (1)
  1. CRESTOR [Suspect]
     Indication: HYPERLIPIDAEMIA
     Route: 048
     Dates: start: 20060725, end: 20080519

REACTIONS (2)
  - DYSGEUSIA [None]
  - HEPATITIS [None]
